FAERS Safety Report 10664967 (Version 1)
Quarter: 2014Q4

REPORT INFORMATION
  Report Type: Spontaneous
  Country: US (occurrence: None)
  Receive Date: 20141208
  Receipt Date: 20141208
  Transmission Date: 20150529
  Serious: No
  Sender: FDA-Public Use
  Company Number: 2014TUS009302

PATIENT
  Age: 51 Year
  Sex: Female
  Weight: 55.3 kg

DRUGS (4)
  1. DIAZEPAM(DIAZEPAM) [Concomitant]
  2. DEPLIN(CALCIUM LEVOMEFOLATE) [Concomitant]
  3. ALPRAZOLAM(ALPRAZOLAM) [Concomitant]
  4. BRINTELLIX [Suspect]
     Active Substance: VORTIOXETINE HYDROBROMIDE
     Indication: PRODUCT USED FOR UNKNOWN INDICATION
     Route: 048
     Dates: start: 20140906

REACTIONS (9)
  - Thinking abnormal [None]
  - Headache [None]
  - Depression [None]
  - Night sweats [None]
  - Nausea [None]
  - Sleep disorder [None]
  - Alopecia [None]
  - Anxiety [None]
  - Confusional state [None]
